FAERS Safety Report 17006788 (Version 2)
Quarter: 2020Q1

REPORT INFORMATION
  Report Type: Report from Study
  Country: US (occurrence: US)
  Receive Date: 20191107
  Receipt Date: 20200311
  Transmission Date: 20200409
  Serious: Yes (Death, Hospitalization, Other)
  Sender: FDA-Public Use
  Company Number: US-GILEAD-2018-0353274

PATIENT
  Age: 78 Year
  Sex: Male
  Weight: 70 kg

DRUGS (84)
  1. CALCIUM CARBONATE. [Concomitant]
     Active Substance: CALCIUM CARBONATE
     Dosage: UNK
     Dates: start: 20180702, end: 20180702
  2. FILGRASTIM [Concomitant]
     Active Substance: FILGRASTIM
     Dosage: UNK
     Dates: start: 20180723, end: 20180724
  3. FILGRASTIM [Concomitant]
     Active Substance: FILGRASTIM
     Dosage: 300,MG,OTHER
     Route: 058
     Dates: start: 20180911, end: 20180911
  4. PREDNISONE. [Concomitant]
     Active Substance: PREDNISONE
     Dosage: 50,MG,DAILY
     Route: 048
     Dates: start: 20180911, end: 20190912
  5. PLATELETS [Concomitant]
     Active Substance: HUMAN PLATELET, ALLOGENIC
     Dosage: UNK
     Dates: start: 20180802, end: 20180802
  6. PLATELETS [Concomitant]
     Active Substance: HUMAN PLATELET, ALLOGENIC
     Dosage: UNK
     Dates: start: 20180806, end: 20180806
  7. PLATELETS [Concomitant]
     Active Substance: HUMAN PLATELET, ALLOGENIC
     Dosage: 1,OTHER,OTHER
     Route: 041
     Dates: start: 20180828, end: 20180828
  8. SODIUM CHLORIDE. [Concomitant]
     Active Substance: SODIUM CHLORIDE
     Dosage: UNK
     Dates: start: 20180725, end: 20180727
  9. LOMOTIL [Concomitant]
     Active Substance: ATROPINE SULFATE\DIPHENOXYLATE HYDROCHLORIDE
     Dosage: UNK
     Dates: start: 20180627, end: 20180628
  10. NICOTINE. [Concomitant]
     Active Substance: NICOTINE
     Dosage: UNK
     Dates: start: 20180806, end: 20180810
  11. ASPIRIN                            /00002701/ [Concomitant]
     Active Substance: ASPIRIN
     Dosage: UNK
     Dates: start: 2013, end: 20180801
  12. PREDNISONE. [Concomitant]
     Active Substance: PREDNISONE
     Dosage: 40 MG, UNK
     Dates: start: 20180723, end: 20180724
  13. PREDNISONE. [Concomitant]
     Active Substance: PREDNISONE
     Dosage: 50,MG,DAILY
     Route: 048
     Dates: start: 20180911, end: 20180912
  14. PLATELETS [Concomitant]
     Active Substance: HUMAN PLATELET, ALLOGENIC
     Dosage: UNK
     Dates: start: 20180809, end: 20180809
  15. PLATELETS [Concomitant]
     Active Substance: HUMAN PLATELET, ALLOGENIC
     Dosage: UNK
     Dates: start: 20180814, end: 20180814
  16. ONDANSETRON [Concomitant]
     Active Substance: ONDANSETRON
     Dosage: 16 MG, UNK
     Dates: start: 20180725, end: 20180727
  17. SODIUM CHLORIDE. [Concomitant]
     Active Substance: SODIUM CHLORIDE
     Dosage: 80,ML,OTHER, 0.9%
     Route: 041
     Dates: start: 20180914, end: 20180914
  18. BENADRYL [Concomitant]
     Active Substance: DIPHENHYDRAMINE HYDROCHLORIDE
     Dosage: UNK
     Dates: start: 20180730, end: 20180730
  19. FLUCONAZOLE. [Concomitant]
     Active Substance: FLUCONAZOLE
     Dosage: 400,MG,DAILY
     Route: 041
     Dates: start: 20180913, end: 20180914
  20. SODIUM CHLORIDE 0.9% [Concomitant]
     Active Substance: SODIUM CHLORIDE
     Dosage: 80,ML,OTHER
     Route: 041
     Dates: start: 20180914, end: 20180914
  21. AXICABTAGENE CILOLEUCEL [Suspect]
     Active Substance: AXICABTAGENE CILOLEUCEL
     Indication: B-CELL LYMPHOMA
     Dosage: 68 ML, ONCE
     Route: 042
     Dates: start: 20180730, end: 20180730
  22. CYCLOPHOSPHAMIDE. [Suspect]
     Active Substance: CYCLOPHOSPHAMIDE
     Indication: BONE MARROW CONDITIONING REGIMEN
     Dosage: 500 MG/M2, QD
     Route: 042
     Dates: start: 20180725, end: 20180727
  23. FLUDARABINE [Suspect]
     Active Substance: FLUDARABINE PHOSPHATE
     Indication: BONE MARROW CONDITIONING REGIMEN
     Dosage: 30 MG/M2, QD
     Route: 042
     Dates: start: 20180725, end: 20180727
  24. BACTRIM DS [Concomitant]
     Active Substance: SULFAMETHOXAZOLE\TRIMETHOPRIM
     Dosage: 160,MG,TWICE DAILY
     Route: 041
     Dates: start: 20180913, end: 20180914
  25. CALCIUM GLUCONATE. [Concomitant]
     Active Substance: CALCIUM GLUCONATE
     Dosage: UNK
     Dates: start: 20180702, end: 20180702
  26. PLATELETS [Concomitant]
     Active Substance: HUMAN PLATELET, ALLOGENIC
     Dosage: UNK
     Dates: start: 20180730, end: 20180730
  27. PLATELETS [Concomitant]
     Active Substance: HUMAN PLATELET, ALLOGENIC
     Dosage: UNK
     Dates: start: 20180804, end: 20180804
  28. PLATELETS [Concomitant]
     Active Substance: HUMAN PLATELET, ALLOGENIC
     Dosage: 1,OTHER,OTHER
     Route: 041
     Dates: start: 20180905, end: 20180905
  29. PLATELETS [Concomitant]
     Active Substance: HUMAN PLATELET, ALLOGENIC
     Dosage: 1,OTHER,OTHER
     Route: 041
     Dates: start: 20180820, end: 20180820
  30. LEVETIRACETAM. [Concomitant]
     Active Substance: LEVETIRACETAM
     Dosage: 1000,MG,TWICE DAILY
     Route: 041
     Dates: start: 20180811, end: 20180823
  31. ACYCLOVIR                          /00587301/ [Concomitant]
     Active Substance: ACYCLOVIR
     Dosage: UNK
     Dates: start: 20180804, end: 20180807
  32. RED BLOOD CELLS [Concomitant]
     Active Substance: HUMAN RED BLOOD CELL
     Dosage: 1,OTHER,OTHER
     Route: 041
     Dates: start: 20180914, end: 20180914
  33. BACTRIM [Concomitant]
     Active Substance: SULFAMETHOXAZOLE\TRIMETHOPRIM
     Dosage: 160,MG,TWICE DAILY
     Route: 041
     Dates: start: 20180913, end: 20180914
  34. BACTRIM DS [Concomitant]
     Active Substance: SULFAMETHOXAZOLE\TRIMETHOPRIM
     Dosage: 1,OTHER,TWICE DAILY
     Route: 048
     Dates: start: 20180824, end: 20180912
  35. OXYCODONE [Concomitant]
     Active Substance: OXYCODONE
     Dosage: 5,MG,AS NECESSARY
     Route: 048
     Dates: start: 20180327, end: 20180830
  36. POTASSIUM CHLORIDE. [Concomitant]
     Active Substance: POTASSIUM CHLORIDE
     Dosage: UNK
     Dates: start: 20180801, end: 20180801
  37. ONDANSETRON [Concomitant]
     Active Substance: ONDANSETRON
     Dosage: 4,MG,AS NECESSARY
     Route: 048
     Dates: start: 20180510, end: 20180510
  38. SODIUM CHLORIDE. [Concomitant]
     Active Substance: SODIUM CHLORIDE
     Dosage: UNK
     Dates: start: 20180730, end: 20180731
  39. NICOTINE. [Concomitant]
     Active Substance: NICOTINE
     Dosage: 14,MG,DAILY
     Route: 061
     Dates: start: 20180811, end: 20180830
  40. ACYCLOVIR                          /00587301/ [Concomitant]
     Active Substance: ACYCLOVIR
     Dosage: UNK
     Dates: start: 20180730, end: 20180803
  41. ACYCLOVIR                          /00587301/ [Concomitant]
     Active Substance: ACYCLOVIR
     Dosage: 400,MG,THREE TIMES DAILY
     Route: 048
     Dates: start: 20180824, end: 20180912
  42. ASPIRIN                            /00002701/ [Concomitant]
     Active Substance: ASPIRIN
     Dosage: 81,MG,DAILY
     Route: 048
     Dates: start: 20180907, end: 20180911
  43. MINOCYCLINE [Concomitant]
     Active Substance: MINOCYCLINE HYDROCHLORIDE
     Dosage: UNK
     Dates: start: 201712, end: 20180803
  44. OXYCODONE [Concomitant]
     Active Substance: OXYCODONE
     Dosage: 5,MG,AS NECESSARY
     Route: 048
     Dates: start: 20180907, end: 20180911
  45. ANTICOAGULANT CITRATE DEXTROSE SOLUTION (ACD) NOS [Concomitant]
     Active Substance: CITRIC ACID MONOHYDRATE\DEXTROSE\SODIUM CITRATE
     Dosage: UNK
     Dates: start: 20180702, end: 20180702
  46. FILGRASTIM [Concomitant]
     Active Substance: FILGRASTIM
     Dosage: 300,OTHER,DAILY
     Route: 058
     Dates: start: 20180821, end: 20180829
  47. PLATELETS [Concomitant]
     Active Substance: HUMAN PLATELET, ALLOGENIC
     Dosage: UNK
     Dates: start: 20180725, end: 20180725
  48. PLATELETS [Concomitant]
     Active Substance: HUMAN PLATELET, ALLOGENIC
     Dosage: 1,OTHER,OTHER
     Route: 041
     Dates: start: 20180825, end: 20180825
  49. PLATELETS [Concomitant]
     Active Substance: HUMAN PLATELET, ALLOGENIC
     Dosage: 1,OTHER,DAILY
     Route: 041
     Dates: start: 20180829, end: 20180829
  50. SODIUM CHLORIDE. [Concomitant]
     Active Substance: SODIUM CHLORIDE
     Dosage: UNK
     Dates: start: 20180807, end: 20180808
  51. ACETAMINOPHEN. [Concomitant]
     Active Substance: ACETAMINOPHEN
     Dosage: 650,MG,AS NECESSARY
     Route: 048
     Dates: start: 20180731, end: 20180830
  52. FLUCONAZOLE. [Concomitant]
     Active Substance: FLUCONAZOLE
     Dosage: UNK
     Dates: start: 20180804, end: 20180806
  53. LEVETIRACETAM. [Concomitant]
     Active Substance: LEVETIRACETAM
     Dosage: UNK
     Dates: start: 20180730, end: 20180803
  54. ATORVASTATIN [Concomitant]
     Active Substance: ATORVASTATIN
     Dosage: UNK
     Dates: start: 2013, end: 20180801
  55. POTASSIUM CHLORIDE. [Concomitant]
     Active Substance: POTASSIUM CHLORIDE
     Dosage: UNK
     Dates: start: 20180702, end: 20180702
  56. FILGRASTIM [Concomitant]
     Active Substance: FILGRASTIM
     Dosage: UNK
     Dates: start: 20180702, end: 20180702
  57. PLATELETS [Concomitant]
     Active Substance: HUMAN PLATELET, ALLOGENIC
     Dosage: 1,OTHER,OTHER
     Route: 041
     Dates: start: 20180816, end: 20180816
  58. FLUCONAZOLE. [Concomitant]
     Active Substance: FLUCONAZOLE
     Dosage: 400,MG,DAILY
     Route: 048
     Dates: start: 20180825, end: 20180911
  59. LEVETIRACETAM. [Concomitant]
     Active Substance: LEVETIRACETAM
     Dosage: 1000,MG,TWICE DAILY
     Route: 048
     Dates: start: 20180824, end: 20180826
  60. ACYCLOVIR                          /00587301/ [Concomitant]
     Active Substance: ACYCLOVIR
     Dosage: UNK
     Dates: start: 20180913, end: 20180914
  61. ASPIRIN [ACETYLSALICYLIC ACID] [Concomitant]
     Active Substance: ASPIRIN
     Dosage: 81,MG,DAILY
     Route: 048
     Dates: start: 20180907, end: 20180911
  62. ATORVASTATIN [Concomitant]
     Active Substance: ATORVASTATIN
     Dosage: 40,MG,DAILY
     Route: 048
     Dates: start: 20180907, end: 20180911
  63. ALLOPURINOL. [Concomitant]
     Active Substance: ALLOPURINOL
     Dosage: UNK
     Dates: start: 20180725, end: 20180808
  64. ACETAMINOPHEN. [Concomitant]
     Active Substance: ACETAMINOPHEN
     Dosage: UNK
     Dates: start: 20180730, end: 20180730
  65. FLUCONAZOLE. [Concomitant]
     Active Substance: FLUCONAZOLE
     Dosage: UNK
     Dates: start: 20180730, end: 20180730
  66. NICOTINE. [Concomitant]
     Active Substance: NICOTINE
     Dosage: UNK
     Dates: start: 20180730, end: 20180805
  67. ACYCLOVIR                          /00587301/ [Concomitant]
     Active Substance: ACYCLOVIR
     Dosage: 300,MG,TWICE DAILY
     Route: 041
     Dates: start: 20180809, end: 20180823
  68. BACTRIM DS [Concomitant]
     Active Substance: SULFAMETHOXAZOLE\TRIMETHOPRIM
     Indication: NOCARDIOSIS
     Dosage: UNK
     Dates: start: 201712, end: 20180803
  69. ATORVASTATIN [Concomitant]
     Active Substance: ATORVASTATIN
     Dosage: 40,MG,DAILY
     Route: 048
     Dates: start: 20180907, end: 20190911
  70. MAGNESIUM OXIDE. [Concomitant]
     Active Substance: MAGNESIUM OXIDE
     Dosage: UNK
     Dates: start: 20180702, end: 20180702
  71. POTASSIUM CHLORIDE. [Concomitant]
     Active Substance: POTASSIUM CHLORIDE
     Dosage: UNK
     Dates: start: 20180802, end: 20180802
  72. FILGRASTIM [Concomitant]
     Active Substance: FILGRASTIM
     Dosage: UNK
     Dates: start: 20180728, end: 20180729
  73. PLATELETS [Concomitant]
     Active Substance: HUMAN PLATELET, ALLOGENIC
     Dosage: UNK
     Dates: start: 20180811, end: 20180811
  74. PLATELETS [Concomitant]
     Active Substance: HUMAN PLATELET, ALLOGENIC
     Dosage: 1,OTHER,OTHER
     Route: 041
     Dates: start: 20180823, end: 20180823
  75. ONDANSETRON [Concomitant]
     Active Substance: ONDANSETRON
     Dosage: 4,MG,AS NECESSARY
     Route: 041
     Dates: start: 20180731, end: 20180830
  76. SODIUM CHLORIDE. [Concomitant]
     Active Substance: SODIUM CHLORIDE
     Dosage: UNK
     Dates: start: 20180728, end: 20180728
  77. BENADRYL [Concomitant]
     Active Substance: DIPHENHYDRAMINE HYDROCHLORIDE
     Dosage: ONCE
     Dates: start: 20180725, end: 20180725
  78. ENOXAPARIN [Concomitant]
     Active Substance: ENOXAPARIN
     Dosage: 40,MG,DAILY
     Route: 058
     Dates: start: 20180730, end: 20180830
  79. FLUCONAZOLE. [Concomitant]
     Active Substance: FLUCONAZOLE
     Dosage: UNK
     Dates: start: 20180731, end: 20180803
  80. LEVETIRACETAM. [Concomitant]
     Active Substance: LEVETIRACETAM
     Dosage: UNK
     Dates: start: 20180804, end: 20180810
  81. LEVETIRACETAM. [Concomitant]
     Active Substance: LEVETIRACETAM
     Dosage: 750,MG,TWICE DAILY
     Route: 048
     Dates: start: 20180827, end: 20180829
  82. LEVOFLOXACIN. [Concomitant]
     Active Substance: LEVOFLOXACIN
     Dosage: UNK
     Dates: start: 20180730, end: 20180730
  83. ACYCLOVIR                          /00587301/ [Concomitant]
     Active Substance: ACYCLOVIR
     Dosage: UNK
     Dates: start: 20180808, end: 20180808
  84. RED BLOOD CELLS [Concomitant]
     Active Substance: HUMAN RED BLOOD CELL
     Dosage: 1,OTHER,OTHER
     Route: 041
     Dates: start: 20180905, end: 20180905

REACTIONS (12)
  - Confusional state [Recovered/Resolved]
  - Cytokine release syndrome [Recovered/Resolved]
  - Encephalopathy [Recovered/Resolved]
  - Confusional state [Recovered/Resolved]
  - Encephalopathy [Recovered/Resolved]
  - Hypoxia [Recovered/Resolved]
  - Dysphagia [Recovered/Resolved]
  - B-cell lymphoma [Fatal]
  - Respiratory failure [Recovered/Resolved]
  - Confusional state [Recovered/Resolved]
  - Somnolence [Recovered/Resolved]
  - Pyrexia [Recovered/Resolved]

NARRATIVE: CASE EVENT DATE: 20180731
